FAERS Safety Report 10179256 (Version 1)
Quarter: 2014Q2

REPORT INFORMATION
  Report Type: Spontaneous
  Country: US (occurrence: US)
  Receive Date: 20140519
  Receipt Date: 20140519
  Transmission Date: 20141212
  Serious: No
  Sender: FDA-Public Use
  Company Number: US-ENDO PHARMACEUTICALS INC.-AMLO20130014

PATIENT
  Sex: Male

DRUGS (1)
  1. AMLODIPINE BESYLATE TABLETS 10MG [Suspect]
     Indication: BLOOD PRESSURE
     Route: 048

REACTIONS (1)
  - Drug ineffective [Not Recovered/Not Resolved]
